FAERS Safety Report 4847794-9 (Version None)
Quarter: 2005Q4

REPORT INFORMATION
  Report Type: 
  Country: None (occurrence: None)
  Receive Date: 20051205
  Receipt Date: 20051124
  Transmission Date: 20060501
  Serious: Yes (Other)
  Sender: FDA-Public Use
  Company Number: 200510592BYL

PATIENT

DRUGS (3)
  1. ASPIRIN [Suspect]
     Dosage: ORAL
     Route: 048
  2. PANALDINE [Concomitant]
  3. SELBEX [Concomitant]

REACTIONS (2)
  - AGRANULOCYTOSIS [None]
  - PNEUMONIA [None]
